FAERS Safety Report 11635456 (Version 2)
Quarter: 2015Q4

REPORT INFORMATION
  Report Type: Spontaneous
  Country: BR (occurrence: BR)
  Receive Date: 20151016
  Receipt Date: 20151110
  Transmission Date: 20160304
  Serious: Yes (Death, Other)
  Sender: FDA-Public Use
  Company Number: BR-ROCHE-1646927

PATIENT
  Age: 71 Year
  Sex: Male

DRUGS (1)
  1. AVASTIN [Suspect]
     Active Substance: BEVACIZUMAB
     Indication: PRODUCT USED FOR UNKNOWN INDICATION
     Route: 065
     Dates: start: 201505

REACTIONS (6)
  - Gastrointestinal haemorrhage [Unknown]
  - Cerebral haemorrhage [Unknown]
  - Visual acuity reduced [Unknown]
  - Death [Fatal]
  - Nervous system disorder [Unknown]
  - Malaise [Unknown]
